FAERS Safety Report 21059006 (Version 1)
Quarter: 2022Q3

REPORT INFORMATION
  Report Type: Spontaneous
  Country: US (occurrence: US)
  Receive Date: 20220708
  Receipt Date: 20220708
  Transmission Date: 20221027
  Serious: Yes (Other)
  Sender: FDA-Public Use
  Company Number: US-PFIZER INC-202200934598

PATIENT
  Age: 79 Year
  Sex: Female
  Weight: 48.4 kg

DRUGS (1)
  1. IBRANCE [Suspect]
     Active Substance: PALBOCICLIB
     Indication: Breast cancer female
     Dosage: 21 DAYS THEN THEY STOP FOR 7 DAYS
     Route: 048
     Dates: start: 20210512

REACTIONS (1)
  - Haemoglobin decreased [Unknown]
